FAERS Safety Report 9328957 (Version 1)
Quarter: 2013Q2

REPORT INFORMATION
  Report Type: Spontaneous
  Country: US (occurrence: US)
  Receive Date: 20130604
  Receipt Date: 20130604
  Transmission Date: 20140414
  Serious: Yes (Hospitalization)
  Sender: FDA-Public Use
  Company Number: US-INCYTE CORPORATION-2013IN000772

PATIENT
  Age: 76 Year
  Sex: Female
  Weight: 68.03 kg

DRUGS (17)
  1. JAKAFI [Suspect]
     Indication: MYELOFIBROSIS
     Dosage: 20 MG, BID
     Route: 048
     Dates: start: 20120907, end: 2012
  2. JAKAFI [Suspect]
     Dosage: 5 MG, BID
     Route: 048
     Dates: start: 20121207
  3. JAKAFI [Suspect]
     Dosage: 10 MG, BID
     Route: 048
     Dates: start: 20130124
  4. JAKAFI [Suspect]
     Dosage: 25 MG, BID
     Route: 048
     Dates: start: 20130208
  5. JAKAFI [Suspect]
     Dosage: 20 MG, BID
     Route: 048
     Dates: start: 20130210
  6. JAKAFI [Suspect]
     Dosage: 20MG/30 MG ALT DAYS
     Route: 048
     Dates: start: 20130214
  7. JAKAFI [Suspect]
     Dosage: 10 MG, BID
     Route: 048
     Dates: start: 20130425
  8. LIPITOR [Concomitant]
  9. ASPIRIN [Concomitant]
  10. ATENOLOL [Concomitant]
  11. PREDNISONE [Concomitant]
  12. LEVOTHYROXINE [Concomitant]
  13. PANTOPRAZOLE [Concomitant]
  14. GUAIFENESIN [Concomitant]
  15. XANAX [Concomitant]
  16. PERCOCET [Concomitant]
  17. EVISTA [Concomitant]

REACTIONS (3)
  - Abdominal pain [Recovering/Resolving]
  - Platelet count decreased [Recovering/Resolving]
  - White blood cell count decreased [Recovering/Resolving]
